FAERS Safety Report 8427115-5 (Version None)
Quarter: 2012Q2

REPORT INFORMATION
  Report Type: 
  Country: None (occurrence: None)
  Receive Date: 20120611
  Receipt Date: 20120602
  Transmission Date: 20120825
  Serious: Yes (Other)
  Sender: FDA-Public Use
  Company Number: CA-JNJFOC-20120602277

PATIENT
  Age: 63 Year
  Sex: Female
  Weight: 69.4 kg

DRUGS (3)
  1. ANTIHYPERTENSIVES [Concomitant]
     Indication: PRODUCT USED FOR UNKNOWN INDICATION
     Route: 065
  2. ACETAMINOPHEN [Suspect]
     Indication: ARTHRITIS
     Dosage: 2X, 4X, 6X A DAY
     Route: 048
     Dates: start: 20120101, end: 20120602
  3. ACETAMINOPHEN [Suspect]
     Route: 048

REACTIONS (1)
  - HYPOTENSION [None]
